FAERS Safety Report 25578475 (Version 3)
Quarter: 2025Q3

REPORT INFORMATION
  Report Type: Report from Study
  Country: US (occurrence: US)
  Receive Date: 20250718
  Receipt Date: 20250801
  Transmission Date: 20251020
  Serious: Yes (Other)
  Sender: MALLINCKRODT
  Company Number: US-MALLINCKRODT-MNK202504203

PATIENT
  Age: 10 Month
  Sex: Female
  Weight: 8 kg

DRUGS (10)
  1. CORTICOTROPIN [Suspect]
     Active Substance: CORTICOTROPIN
     Indication: Infantile spasms
     Route: 030
     Dates: start: 20250621, end: 2025
  2. CORTICOTROPIN [Suspect]
     Active Substance: CORTICOTROPIN
     Dates: start: 2025, end: 2025
  3. CORTICOTROPIN [Suspect]
     Active Substance: CORTICOTROPIN
     Dates: start: 2025, end: 2025
  4. ALBUTEROL SULFATE [Concomitant]
     Active Substance: ALBUTEROL SULFATE
  5. CLOBAZAM [Concomitant]
     Active Substance: CLOBAZAM
  6. CLONAZEPAM [Concomitant]
     Active Substance: CLONAZEPAM
  7. FAMOTIDINE [Concomitant]
     Active Substance: FAMOTIDINE
  8. LACOSAMIDE [Concomitant]
     Active Substance: LACOSAMIDE
  9. POLYETHYLENE GLYCOLS [Concomitant]
     Active Substance: POLYETHYLENE GLYCOLS
  10. VIGABATRIN [Concomitant]
     Active Substance: VIGABATRIN

REACTIONS (3)
  - Infantile spasms [Not Recovered/Not Resolved]
  - Disease recurrence [Not Recovered/Not Resolved]
  - Absence of immediate treatment response [Unknown]

NARRATIVE: CASE EVENT DATE: 20250101
